FAERS Safety Report 14876088 (Version 2)
Quarter: 2018Q2

REPORT INFORMATION
  Report Type: Spontaneous
  Country: GR (occurrence: GR)
  Receive Date: 20180510
  Receipt Date: 20180527
  Transmission Date: 20180711
  Serious: Yes (Hospitalization, Other)
  Sender: FDA-Public Use
  Company Number: GR-009507513-1805GRC002632

PATIENT
  Age: 63 Year
  Sex: Male

DRUGS (2)
  1. KEYTRUDA [Suspect]
     Active Substance: PEMBROLIZUMAB
     Indication: NON-SMALL CELL LUNG CANCER
     Dosage: 200 MG, CYCLICAL
  2. KEYTRUDA [Suspect]
     Active Substance: PEMBROLIZUMAB
     Dosage: 200 MG, CYCLICAL
     Dates: start: 20180424

REACTIONS (6)
  - Confusional state [Recovered/Resolved]
  - Weight increased [Unknown]
  - Communication disorder [Recovered/Resolved]
  - Tremor [Not Recovered/Not Resolved]
  - Agitation [Recovered/Resolved]
  - Tumour associated fever [Unknown]

NARRATIVE: CASE EVENT DATE: 2018
